FAERS Safety Report 15936323 (Version 5)
Quarter: 2020Q1

REPORT INFORMATION
  Report Type: Report from Study
  Country: US (occurrence: US)
  Receive Date: 20190208
  Receipt Date: 20200127
  Transmission Date: 20200409
  Serious: No
  Sender: FDA-Public Use
  Company Number: US-AMGEN-USASP2019017773

PATIENT
  Age: 72 Year
  Sex: Female

DRUGS (3)
  1. MULTIVITAMIN [ASCORBIC ACID;BIOTIN;CALCIUM PANTOTHENATE;CYANOCOBALAMIN [Concomitant]
     Active Substance: VITAMINS
  2. VITAMIN D [Concomitant]
     Active Substance: VITAMIN D NOS
     Dosage: 2000 INTERNATIONAL UNIT
  3. PROLIA [Suspect]
     Active Substance: DENOSUMAB
     Indication: OSTEOPOROSIS POSTMENOPAUSAL
     Dosage: 60 MILLIGRAM, Q6MO
     Route: 065
     Dates: start: 2017

REACTIONS (5)
  - Osteoporosis postmenopausal [Not Recovered/Not Resolved]
  - Diarrhoea [Unknown]
  - Vitamin D decreased [Unknown]
  - Paraesthesia [Unknown]
  - Nausea [Unknown]
